FAERS Safety Report 5679333-7 (Version None)
Quarter: 2008Q1

REPORT INFORMATION
  Report Type: 
  Country: None (occurrence: None)
  Receive Date: 20080325
  Receipt Date: 20080313
  Transmission Date: 20080703
  Serious: Yes (Hospitalization)
  Sender: FDA-Public Use
  Company Number: US-ELI_LILLY_AND_COMPANY-US200803003028

PATIENT
  Sex: Female

DRUGS (1)
  1. HUMULIN N [Suspect]
     Dates: start: 19840101

REACTIONS (4)
  - BALANCE DISORDER [None]
  - CEREBROVASCULAR ACCIDENT [None]
  - DRUG EXPOSURE DURING PREGNANCY [None]
  - SENSORY LOSS [None]
